FAERS Safety Report 5417053-4 (Version None)
Quarter: 2007Q3

REPORT INFORMATION
  Report Type: 
  Country: None (occurrence: None)
  Receive Date: 20070816
  Receipt Date: 20061004
  Transmission Date: 20080115
  Serious: No
  Sender: FDA-Public Use
  Company Number: US-BRISTOL-MYERS SQUIBB COMPANY-13530480

PATIENT
  Age: 48 Year
  Sex: Female
  Weight: 54 kg

DRUGS (5)
  1. ZERIT [Suspect]
     Indication: HIV INFECTION
  2. REYATAZ [Concomitant]
  3. CLARINEX [Concomitant]
  4. PEPCID [Concomitant]
  5. MULTI-VITAMIN [Concomitant]

REACTIONS (2)
  - FAT REDISTRIBUTION [None]
  - GASTROOESOPHAGEAL REFLUX DISEASE [None]
